FAERS Safety Report 23551324 (Version 1)
Quarter: 2024Q1

REPORT INFORMATION
  Report Type: Spontaneous
  Country: US (occurrence: US)
  Receive Date: 20240222
  Receipt Date: 20240222
  Transmission Date: 20240410
  Serious: Yes (Hospitalization)
  Sender: FDA-Public Use
  Company Number: US-AMGEN-USASP2024033173

PATIENT
  Age: 68 Year
  Sex: Female

DRUGS (1)
  1. TAVNEOS [Suspect]
     Active Substance: AVACOPAN
     Indication: Antineutrophil cytoplasmic antibody
     Dosage: UNK UNK, BID (TWICE DAILY)
     Route: 065
     Dates: start: 20231121

REACTIONS (1)
  - Bronchial disorder [Unknown]

NARRATIVE: CASE EVENT DATE: 20240113
